FAERS Safety Report 5868948-9 (Version None)
Quarter: 2008Q3

REPORT INFORMATION
  Report Type: 
  Country: None (occurrence: None)
  Receive Date: 20080902
  Receipt Date: 20080902
  Transmission Date: 20090109
  Serious: Yes (Other)
  Sender: FDA-Public Use
  Company Number: None

PATIENT
  Age: 30 Year
  Sex: Female
  Weight: 109.7705 kg

DRUGS (2)
  1. CHANTIX [Suspect]
     Indication: HALLUCINATION, VISUAL
     Dosage: 1 MG BID PO
     Route: 048
     Dates: start: 20080801, end: 20080817
  2. CHANTIX [Suspect]
     Indication: SUICIDAL IDEATION
     Dosage: 1 MG BID PO
     Route: 048
     Dates: start: 20080801, end: 20080817

REACTIONS (4)
  - DEPRESSION [None]
  - HALLUCINATIONS, MIXED [None]
  - PSYCHOMOTOR SKILLS IMPAIRED [None]
  - SUICIDAL IDEATION [None]
